FAERS Safety Report 19673900 (Version 1)
Quarter: 2021Q3

REPORT INFORMATION
  Report Type: Spontaneous
  Country: US (occurrence: US)
  Receive Date: 20210807
  Receipt Date: 20210807
  Transmission Date: 20211014
  Serious: No
  Sender: FDA-Public Use
  Company Number: None

PATIENT
  Sex: Male

DRUGS (1)
  1. C?TREPROSTINIL (2ML) RM 5MG/ML NONE [Suspect]
     Active Substance: TREPROSTINIL
     Indication: PULMONARY ARTERIAL HYPERTENSION
     Dosage: ?          OTHER FREQUENCY:CONTINUOUS ;?
     Route: 058
     Dates: start: 202106

REACTIONS (4)
  - Pain in jaw [None]
  - Headache [None]
  - Arthralgia [None]
  - Pain [None]
